FAERS Safety Report 24976581 (Version 1)
Quarter: 2025Q1

REPORT INFORMATION
  Report Type: Report from Study
  Country: ES (occurrence: ES)
  Receive Date: 20250217
  Receipt Date: 20250217
  Transmission Date: 20250408
  Serious: Yes (Other)
  Sender: TEVA
  Company Number: ES-TEVA-VS-3299125

PATIENT

DRUGS (1)
  1. OXALIPLATIN [Suspect]
     Active Substance: OXALIPLATIN
     Indication: Colon cancer
     Route: 065

REACTIONS (2)
  - Porto-sinusoidal vascular disorder [Unknown]
  - Portal vein thrombosis [Unknown]
